FAERS Safety Report 4693825-9 (Version None)
Quarter: 2005Q2

REPORT INFORMATION
  Report Type: 
  Country: None (occurrence: None)
  Receive Date: 20050616
  Receipt Date: 20050602
  Transmission Date: 20051028
  Serious: Yes (Death, Hospitalization)
  Sender: FDA-Public Use
  Company Number: FR-2005-000897

PATIENT
  Age: 56 Year
  Sex: Male

DRUGS (3)
  1. FLUDARA [Suspect]
     Indication: NON-HODGKIN'S LYMPHOMA
     Dosage: 25 MG/M2, 1X/DAY FOR 5 DAYS, INTRAVENOUS
     Route: 042
     Dates: start: 20040801, end: 20050107
  2. ZELITREX                       (VALACICLOVIR) [Concomitant]
  3. .. [Concomitant]

REACTIONS (3)
  - GUILLAIN-BARRE SYNDROME [None]
  - IMMUNOSUPPRESSION [None]
  - INFECTION [None]
